FAERS Safety Report 17809913 (Version 1)
Quarter: 2020Q2

REPORT INFORMATION
  Report Type: Spontaneous
  Country: FR (occurrence: FR)
  Receive Date: 20200520
  Receipt Date: 20200520
  Transmission Date: 20200714
  Serious: Yes (Other)
  Sender: FDA-Public Use
  Company Number: FR-CELGENEUS-FRA-20200504901

PATIENT
  Age: 48 Year
  Sex: Female
  Weight: 60 kg

DRUGS (2)
  1. ABRAXANE [Suspect]
     Active Substance: PACLITAXEL
     Indication: INVASIVE DUCTAL BREAST CARCINOMA
     Dosage: DOSE NOT PROVIDED
     Route: 042
     Dates: start: 20200416, end: 20200416
  2. CARBOPLATIN. [Concomitant]
     Active Substance: CARBOPLATIN
     Indication: INVASIVE DUCTAL BREAST CARCINOMA
     Route: 042
     Dates: start: 20200416, end: 20200416

REACTIONS (4)
  - Malaise [Recovered/Resolved]
  - Nausea [Recovered/Resolved]
  - Rash [Not Recovered/Not Resolved]
  - Fatigue [Recovered/Resolved]

NARRATIVE: CASE EVENT DATE: 20200423
